FAERS Safety Report 25548681 (Version 1)
Quarter: 2025Q3

REPORT INFORMATION
  Report Type: Spontaneous
  Country: EU (occurrence: EU)
  Receive Date: 20250714
  Receipt Date: 20250714
  Transmission Date: 20251021
  Serious: Yes (Other)
  Sender: AUROBINDO
  Company Number: EU-ASTELLAS-2022US002132

PATIENT
  Age: 27 Year
  Sex: Female

DRUGS (3)
  1. MYCOPHENOLIC ACID [Suspect]
     Active Substance: MYCOPHENOLIC ACID
     Indication: Immunosuppression
     Route: 065
     Dates: start: 200904
  2. MYCOPHENOLIC ACID [Suspect]
     Active Substance: MYCOPHENOLIC ACID
     Route: 065
     Dates: end: 201612
  3. TACROLIMUS [Suspect]
     Active Substance: TACROLIMUS
     Indication: Immunosuppression
     Route: 065
     Dates: start: 200904

REACTIONS (13)
  - Polyomavirus viraemia [Recovered/Resolved]
  - Neutropenia [Unknown]
  - Transplant rejection [Unknown]
  - Renal failure [Unknown]
  - Pneumonia [Unknown]
  - Urosepsis [Unknown]
  - Cytomegalovirus infection [Unknown]
  - Renal impairment [Unknown]
  - Viral test positive [Recovered/Resolved]
  - Urinary tract infection [Unknown]
  - Genital herpes [Unknown]
  - Toxicity to various agents [Unknown]
  - Anogenital warts [Unknown]

NARRATIVE: CASE EVENT DATE: 20090401
